FAERS Safety Report 8491476-1 (Version None)
Quarter: 2012Q3

REPORT INFORMATION
  Report Type: 
  Country: None (occurrence: None)
  Receive Date: 20120706
  Receipt Date: 20120629
  Transmission Date: 20120928
  Serious: Yes (Other)
  Sender: FDA-Public Use
  Company Number: JP-PFIZER INC-2012158540

PATIENT
  Age: 33 Year
  Sex: Male

DRUGS (1)
  1. NEO-MEDROL [Suspect]
     Dosage: UNK
     Route: 062
     Dates: start: 19960701, end: 19990301

REACTIONS (1)
  - GLAUCOMA [None]
